FAERS Safety Report 5608383-1 (Version None)
Quarter: 2008Q1

REPORT INFORMATION
  Report Type: 
  Country: None (occurrence: None)
  Receive Date: 20080130
  Receipt Date: 20080118
  Transmission Date: 20080703
  Serious: Yes (Hospitalization)
  Sender: FDA-Public Use
  Company Number: FR-PFIZER INC-2008005873

PATIENT
  Sex: Female

DRUGS (2)
  1. MEDROL [Suspect]
     Indication: PREMEDICATION
     Route: 048
  2. TAXOTERE [Suspect]
     Indication: BREAST CANCER
     Route: 042

REACTIONS (2)
  - FLUSHING [None]
  - SKIN EXFOLIATION [None]
